FAERS Safety Report 22008993 (Version 1)
Quarter: 2023Q1

REPORT INFORMATION
  Report Type: Spontaneous
  Country: US (occurrence: US)
  Receive Date: 20230220
  Receipt Date: 20230220
  Transmission Date: 20230418
  Serious: No
  Sender: FDA-Public Use
  Company Number: US-SA-SAC20230217000686

PATIENT
  Age: 58 Year
  Sex: Female
  Weight: 68 kg

DRUGS (1)
  1. DUPIXENT [Suspect]
     Active Substance: DUPILUMAB
     Dosage: UNK UNK, 1X
     Dates: start: 20211220, end: 20211220

REACTIONS (4)
  - Arthritis [Unknown]
  - Arthralgia [Unknown]
  - Joint dislocation [Unknown]
  - Weight bearing difficulty [Unknown]

NARRATIVE: CASE EVENT DATE: 20220219
